FAERS Safety Report 7512522-5 (Version None)
Quarter: 2011Q2

REPORT INFORMATION
  Report Type: 
  Country: None (occurrence: None)
  Receive Date: 20110531
  Receipt Date: 20110523
  Transmission Date: 20111010
  Serious: Yes (Other)
  Sender: FDA-Public Use
  Company Number: BR-ROCHE-778601

PATIENT
  Sex: Female
  Weight: 87 kg

DRUGS (1)
  1. CLONAZEPAM [Suspect]
     Indication: INSOMNIA RELATED TO ANOTHER MENTAL CONDITION
     Dosage: DOSE: 2.5MG/ML
     Route: 048
     Dates: start: 20011001

REACTIONS (8)
  - GAMMA-GLUTAMYLTRANSFERASE INCREASED [None]
  - HEPATITIS [None]
  - OVERDOSE [None]
  - NOSOCOMIAL INFECTION [None]
  - ASPARTATE AMINOTRANSFERASE INCREASED [None]
  - SOMNOLENCE [None]
  - GOITRE [None]
  - MEDICATION ERROR [None]
